FAERS Safety Report 10492638 (Version 1)
Quarter: 2014Q4

REPORT INFORMATION
  Report Type: Spontaneous
  Country: US (occurrence: US)
  Receive Date: 20141002
  Receipt Date: 20141002
  Transmission Date: 20150528
  Serious: No
  Sender: FDA-Public Use
  Company Number: US-GLAXOSMITHKLINE-A1073476A

PATIENT
  Age: 62 Year
  Sex: Female

DRUGS (27)
  1. COMBIVENT [Concomitant]
     Active Substance: ALBUTEROL SULFATE\IPRATROPIUM BROMIDE
  2. ALBUTEROL NEBULIZER [Concomitant]
     Active Substance: ALBUTEROL
  3. GLUCOSAMINE [Concomitant]
     Active Substance: GLUCOSAMINE
  4. VITAMIN D [Concomitant]
     Active Substance: CHOLECALCIFEROL
  5. DOXAZOSIN MESYLATE. [Concomitant]
     Active Substance: DOXAZOSIN MESYLATE
  6. ATENOLOL. [Concomitant]
     Active Substance: ATENOLOL
  7. BACLOFEN. [Concomitant]
     Active Substance: BACLOFEN
  8. ADVAIR HFA [Suspect]
     Active Substance: FLUTICASONE PROPIONATE\SALMETEROL XINAFOATE
     Indication: CHRONIC OBSTRUCTIVE PULMONARY DISEASE
     Dosage: 1PUFF UNKNOWN
     Route: 055
     Dates: start: 20140424
  9. MAGNESIUM OXIDE. [Concomitant]
     Active Substance: MAGNESIUM OXIDE
  10. DILANTIN [Concomitant]
     Active Substance: PHENYTOIN
  11. ASPIRIN. [Concomitant]
     Active Substance: ASPIRIN
  12. OXYBUTYNIN CHLORIDE. [Concomitant]
     Active Substance: OXYBUTYNIN CHLORIDE
  13. RANITIDINE [Concomitant]
     Active Substance: RANITIDINE\RANITIDINE HYDROCHLORIDE
  14. VITAMIN B12 [Concomitant]
     Active Substance: CYANOCOBALAMIN
  15. FIBER [Concomitant]
     Active Substance: PSYLLIUM HUSK
  16. LISINOPRIL. [Concomitant]
     Active Substance: LISINOPRIL
  17. FUROSEMIDE. [Concomitant]
     Active Substance: FUROSEMIDE
  18. CALCIUM [Concomitant]
     Active Substance: CALCIUM
  19. POTASSIUM CHLORIDE. [Concomitant]
     Active Substance: POTASSIUM CHLORIDE
  20. GLIPIZIDE. [Concomitant]
     Active Substance: GLIPIZIDE
  21. TRAMADOL [Concomitant]
     Active Substance: TRAMADOL
  22. TRIIODOTHYRONINE [Concomitant]
     Active Substance: LIOTHYRONINE SODIUM
  23. MULTIVITAMIN [Concomitant]
     Active Substance: VITAMINS
  24. MECLIZINE [Concomitant]
     Active Substance: MECLIZINE\MECLIZINE HYDROCHLORIDE
  25. METFORMIN [Concomitant]
     Active Substance: METFORMIN HYDROCHLORIDE
  26. SPIRIVA [Concomitant]
     Active Substance: TIOTROPIUM BROMIDE MONOHYDRATE
  27. PAROXETINE [Concomitant]
     Active Substance: PAROXETINE\PAROXETINE HYDROCHLORIDE

REACTIONS (5)
  - Tension headache [Unknown]
  - Dyspnoea [Unknown]
  - Palpitations [Unknown]
  - Oropharyngeal pain [Not Recovered/Not Resolved]
  - Drug ineffective [Unknown]

NARRATIVE: CASE EVENT DATE: 20140508
